FAERS Safety Report 5139879-7 (Version None)
Quarter: 2006Q4

REPORT INFORMATION
  Report Type: 
  Country: None (occurrence: None)
  Receive Date: 20061026
  Receipt Date: 20061026
  Transmission Date: 20070319
  Serious: Yes (Hospitalization)
  Sender: FDA-Public Use
  Company Number: None

PATIENT
  Sex: Male
  Weight: 75 kg

DRUGS (4)
  1. BACLOFEN [Suspect]
     Indication: PAIN
     Dosage: 10MG  QHS  PO
     Route: 048
     Dates: start: 20060907, end: 20060923
  2. GABAPENTIN [Suspect]
     Indication: PAIN
     Dosage: 300MG  BID  PO
     Route: 048
     Dates: start: 20060816, end: 20060923
  3. CYCLOBENZAPRINE HCL [Concomitant]
  4. AMITRIPTYLINE HCL [Concomitant]

REACTIONS (5)
  - ACTIVITIES OF DAILY LIVING IMPAIRED [None]
  - GAIT DISTURBANCE [None]
  - SPEECH DISORDER [None]
  - TREMOR [None]
  - UNEVALUABLE EVENT [None]
